FAERS Safety Report 21266786 (Version 5)
Quarter: 2024Q2

REPORT INFORMATION
  Report Type: Spontaneous
  Country: US (occurrence: US)
  Receive Date: 20220829
  Receipt Date: 20240614
  Transmission Date: 20240716
  Serious: Yes (Other)
  Sender: FDA-Public Use
  Company Number: US-GLENMARK PHARMACEUTICALS-2022GMK072458

PATIENT

DRUGS (8)
  1. ZONISAMIDE [Suspect]
     Active Substance: ZONISAMIDE
     Indication: Seizure
     Dosage: 4 DOSAGE FORM, QD
     Route: 048
     Dates: start: 201703
  2. ZONISAMIDE [Suspect]
     Active Substance: ZONISAMIDE
     Dosage: 4 DOSAGE FORM, QD (4 PILLS)
     Route: 048
     Dates: start: 20210317, end: 20210711
  3. ZONISAMIDE [Suspect]
     Active Substance: ZONISAMIDE
     Dosage: 4 DOSAGE FORM, QD (SWITCHED TO SAME DRUG (ZONISAMIDE) BUT FROM OTHER MANUFACTURER)
     Route: 048
     Dates: start: 20220414
  4. ZONISAMIDE [Suspect]
     Active Substance: ZONISAMIDE
     Dosage: UNK
     Route: 065
  5. DILANTIN [Concomitant]
     Active Substance: PHENYTOIN
     Indication: Seizure
     Dosage: 350 MILLIGRAM, HS
     Route: 065
  6. DILANTIN [Concomitant]
     Active Substance: PHENYTOIN
     Dosage: 325 MILLIGRAM, HS
     Route: 065
  7. ZONEGRAN [Concomitant]
     Active Substance: ZONISAMIDE
     Indication: Seizure
     Dosage: 125 MILLIGRAM, HS
     Route: 065
  8. ZONEGRAN [Concomitant]
     Active Substance: ZONISAMIDE
     Dosage: 100 MILLIGRAM, HS
     Route: 065

REACTIONS (32)
  - Haematochezia [Recovering/Resolving]
  - Immobile [Unknown]
  - Loss of consciousness [Unknown]
  - Seizure [Recovered/Resolved]
  - Leukopenia [Unknown]
  - Illness [Recovering/Resolving]
  - Road traffic accident [Unknown]
  - Parkinsonism [Recovering/Resolving]
  - Feeling abnormal [Recovering/Resolving]
  - Migraine [Recovering/Resolving]
  - Scar [Recovering/Resolving]
  - Balance disorder [Recovering/Resolving]
  - Hyperchlorhydria [Recovering/Resolving]
  - Feeling jittery [Recovering/Resolving]
  - Muscle tightness [Recovering/Resolving]
  - Blood glucose decreased [Unknown]
  - Gastrointestinal disorder [Unknown]
  - Chest pain [Recovering/Resolving]
  - Injury [Unknown]
  - Muscle twitching [Unknown]
  - Presyncope [Unknown]
  - Malaise [Recovering/Resolving]
  - Anger [Recovering/Resolving]
  - Irritability [Recovering/Resolving]
  - Depression [Recovering/Resolving]
  - Constipation [Recovering/Resolving]
  - Dyspepsia [Recovering/Resolving]
  - Speech disorder [Recovering/Resolving]
  - Dyspnoea [Unknown]
  - Recalled product administered [Unknown]
  - Drug ineffective [Unknown]
  - Product quality control issue [Unknown]

NARRATIVE: CASE EVENT DATE: 20210101
